FAERS Safety Report 12330129 (Version 1)
Quarter: 2016Q2

REPORT INFORMATION
  Report Type: Report from Study
  Country: IT (occurrence: IT)
  Receive Date: 20160504
  Receipt Date: 20160504
  Transmission Date: 20160815
  Serious: Yes (Other)
  Sender: FDA-Public Use
  Company Number: IT-ROCHE-1750191

PATIENT
  Age: 52 Year
  Sex: Male
  Weight: 90 kg

DRUGS (10)
  1. ESBRIET [Suspect]
     Active Substance: PIRFENIDONE
     Route: 048
     Dates: start: 20140506, end: 20140506
  2. DELTACORTENE [Concomitant]
     Active Substance: PREDNISONE
     Route: 065
  3. METOCAL [Concomitant]
     Route: 065
  4. DIBASE [Concomitant]
     Active Substance: CHOLECALCIFEROL
     Dosage: .0833 CCUNIT DOSE: 2.5 CC
     Route: 065
  5. ESBRIET [Suspect]
     Active Substance: PIRFENIDONE
     Indication: IDIOPATHIC PULMONARY FIBROSIS
     Route: 048
     Dates: start: 20140215
  6. ESBRIET [Suspect]
     Active Substance: PIRFENIDONE
     Route: 048
     Dates: end: 20140415
  7. ANTEPSIN [Concomitant]
     Active Substance: SUCRALFATE
     Dosage: 2 GRAINUNIT DOSE: 2 GRAIN
     Route: 065
  8. ACTONEL [Concomitant]
     Active Substance: RISEDRONATE SODIUM
     Route: 065
  9. MODURETIC 5-50 [Concomitant]
     Active Substance: AMILORIDE HYDROCHLORIDE\HYDROCHLOROTHIAZIDE
     Route: 065
  10. OXATOMIDE [Suspect]
     Active Substance: OXATOMIDE
     Indication: PRODUCT USED FOR UNKNOWN INDICATION
     Dosage: 2 TABLETUNIT DOSE: 2 TABLET
     Route: 065

REACTIONS (10)
  - Pruritus [Unknown]
  - Rash [Recovered/Resolved]
  - Syncope [Recovered/Resolved]
  - Erythema [Recovered/Resolved]
  - Somnolence [Recovered/Resolved]
  - Dizziness [Recovered/Resolved]
  - Jaundice [Unknown]
  - Eructation [Recovered/Resolved]
  - Eyelid oedema [Recovered/Resolved]
  - Dyspnoea [Recovered/Resolved]

NARRATIVE: CASE EVENT DATE: 20140330
